FAERS Safety Report 4438467-5 (Version None)
Quarter: 2004Q3

REPORT INFORMATION
  Report Type: 
  Country: None (occurrence: None)
  Receive Date: 20040728
  Receipt Date: 20040505
  Transmission Date: 20050211
  Serious: No
  Sender: FDA-Public Use
  Company Number: USA040363001

PATIENT
  Age: 10 Year
  Sex: Male
  Weight: 36 kg

DRUGS (1)
  1. STRATTERA [Suspect]
     Indication: ATTENTION DEFICIT/HYPERACTIVITY DISORDER
     Dosage: 40 MG/1 DAY

REACTIONS (3)
  - DRUG INEFFECTIVE [None]
  - HYPERSOMNIA [None]
  - SKIN DESQUAMATION [None]
